FAERS Safety Report 8188093 (Version 2)
Quarter: 2013Q2

REPORT INFORMATION
  Report Type: Spontaneous
  Country: US (occurrence: US)
  Receive Date: 20111018
  Receipt Date: 20130408
  Transmission Date: 20140414
  Serious: Yes (Death)
  Sender: FDA-Public Use
  Company Number: US-ASTRAZENECA-2011SE23867

PATIENT
  Age: 79 Year
  Sex: Male

DRUGS (1)
  1. SYMBICORT PMDI [Suspect]
     Dosage: 160 / 4.5, FREQUENCY UNKNOWN
     Route: 055

REACTIONS (3)
  - Bone cancer [Fatal]
  - Nasopharyngitis [Unknown]
  - Rhinorrhoea [Unknown]
